FAERS Safety Report 7984193-5 (Version None)
Quarter: 2011Q4

REPORT INFORMATION
  Report Type: 
  Country: None (occurrence: None)
  Receive Date: 20111216
  Receipt Date: 20111209
  Transmission Date: 20120403
  Serious: Yes (Hospitalization)
  Sender: FDA-Public Use
  Company Number: US-VERTEX PHARMACEUTICALS INC.-AE-2011-004182

PATIENT
  Sex: Male

DRUGS (8)
  1. VICODIN [Concomitant]
  2. PEGASYS [Concomitant]
     Indication: HEPATITIS C
     Route: 058
     Dates: end: 20111128
  3. INCIVEK [Suspect]
     Indication: HEPATITIS C
     Route: 048
     Dates: end: 20111128
  4. SOMA [Concomitant]
  5. RIBAVIRIN [Concomitant]
     Indication: HEPATITIS C
     Route: 048
     Dates: end: 20111128
  6. AMBIEN [Concomitant]
  7. NAPROXEN [Concomitant]
  8. ZYRTEC [Concomitant]

REACTIONS (2)
  - PULMONARY EMBOLISM [None]
  - DEEP VEIN THROMBOSIS [None]
